FAERS Safety Report 14823627 (Version 1)
Quarter: 2018Q2

REPORT INFORMATION
  Report Type: Spontaneous
  Country: US (occurrence: US)
  Receive Date: 20180428
  Receipt Date: 20180428
  Transmission Date: 20180711
  Serious: No
  Sender: FDA-Public Use
  Company Number: US-009507513-1804USA012251

PATIENT
  Sex: Female

DRUGS (1)
  1. NEXPLANON [Suspect]
     Active Substance: ETONOGESTREL
     Indication: CONTRACEPTION
     Dosage: 1 IMPLANT, FOR 3 YEARS
     Route: 059
     Dates: start: 20180402, end: 20180416

REACTIONS (1)
  - Implant site infection [Not Recovered/Not Resolved]

NARRATIVE: CASE EVENT DATE: 201804
